FAERS Safety Report 6031215-7 (Version None)
Quarter: 2008Q4

REPORT INFORMATION
  Report Type: 
  Country: None (occurrence: None)
  Receive Date: 20081224
  Receipt Date: 20081113
  Transmission Date: 20090506
  Serious: No
  Sender: FDA-Public Use
  Company Number: 2008PV037122

PATIENT
  Age: 64 Year
  Sex: Female
  Weight: 91.6266 kg

DRUGS (3)
  1. SYMLINPEN 120 (PRAMLINTIDE ACETATE) PEN-INJECTION (1.0 MG/ML) [Suspect]
     Indication: TYPE 1 DIABETES MELLITUS
     Dosage: 120 MCG;BID;SC ; SC
     Route: 058
     Dates: end: 20081001
  2. SYMLINPEN 120 (PRAMLINTIDE ACETATE) PEN-INJECTION (1.0 MG/ML) [Suspect]
     Indication: TYPE 1 DIABETES MELLITUS
     Dosage: 120 MCG;BID;SC ; SC
     Route: 058
     Dates: start: 20070101
  3. NOVOLOG [Concomitant]

REACTIONS (1)
  - WEIGHT INCREASED [None]
